FAERS Safety Report 6920479-0 (Version None)
Quarter: 2010Q3

REPORT INFORMATION
  Report Type: 
  Country: None (occurrence: None)
  Receive Date: 20100812
  Receipt Date: 20100804
  Transmission Date: 20110219
  Serious: Yes (Hospitalization)
  Sender: FDA-Public Use
  Company Number: US-BIOGENIDEC-2010BI023764

PATIENT
  Age: 50 Year
  Sex: Female

DRUGS (21)
  1. TYSABRI [Suspect]
     Indication: CROHN'S DISEASE
     Route: 042
     Dates: start: 20080827
  2. NUCYNTA [Concomitant]
  3. NUCYNTA [Concomitant]
  4. LEXAPRO [Concomitant]
  5. AMITRIPTYLINE HYDROCHLORIDE [Concomitant]
  6. AMITRIPTYLINE HYDROCHLORIDE [Concomitant]
  7. CALCIUM [Concomitant]
  8. VITAMIN D [Concomitant]
  9. ZOFRAN [Concomitant]
  10. POTASSIUM [Concomitant]
  11. PENTASA [Concomitant]
  12. ZANAFLEX [Concomitant]
  13. ZANAFLEX [Concomitant]
  14. KLONOPIN [Concomitant]
  15. BENTYL [Concomitant]
  16. SONATA [Concomitant]
  17. ATIVAN [Concomitant]
     Indication: SLEEP DISORDER
  18. NICOTINE [Concomitant]
     Route: 062
  19. FLUOROMETHOLONE [Concomitant]
     Route: 047
  20. NEXIUM [Concomitant]
  21. ZOVIRAX [Concomitant]

REACTIONS (3)
  - PNEUMONIA [None]
  - SMALL INTESTINAL OBSTRUCTION [None]
  - URINARY TRACT INFECTION [None]
